FAERS Safety Report 8505813-2 (Version None)
Quarter: 2012Q3

REPORT INFORMATION
  Report Type: 
  Country: None (occurrence: None)
  Receive Date: 20120712
  Receipt Date: 20120703
  Transmission Date: 20120928
  Serious: Yes (Other)
  Sender: FDA-Public Use
  Company Number: US-ASTRAZENECA-2012SE17180

PATIENT
  Age: 64 Year
  Sex: Male

DRUGS (15)
  1. AVODART [Concomitant]
     Route: 048
  2. SYNTHROID [Concomitant]
     Route: 048
  3. CAPRELSA [Suspect]
     Indication: THYROID CANCER
     Route: 048
  4. CALCITRIOL [Concomitant]
     Route: 048
  5. PEPCID AC [Concomitant]
     Route: 048
  6. LEVOTHYROXINE SODIUM [Concomitant]
  7. PEPCID AC [Concomitant]
     Indication: DYSPEPSIA
     Route: 048
  8. DOCUSATE SODIUM [Concomitant]
  9. BENICAR [Concomitant]
     Route: 048
  10. MULTIVITAL [Concomitant]
  11. FAMOTIDINE [Concomitant]
  12. SENNA LEAVES [Concomitant]
  13. MULTI-VITAMIN [Concomitant]
  14. SLOW-MAG [Concomitant]
  15. HYRDOCODONE-ACETAMINOPHEN [Concomitant]

REACTIONS (9)
  - HYPOMAGNESAEMIA [None]
  - DIARRHOEA [None]
  - POLYCYTHAEMIA [None]
  - DYSPNOEA [None]
  - HYPOKALAEMIA [None]
  - ACNE [None]
  - MUSCULOSKELETAL CHEST PAIN [None]
  - RASH [None]
  - BLOOD PRESSURE INCREASED [None]
